FAERS Safety Report 7308576-1 (Version None)
Quarter: 2011Q1

REPORT INFORMATION
  Report Type: 
  Country: None (occurrence: None)
  Receive Date: 20110223
  Receipt Date: 20101217
  Transmission Date: 20110831
  Serious: No
  Sender: FDA-Public Use
  Company Number: US-BAYER-2010-007394

PATIENT
  Sex: Female

DRUGS (1)
  1. MIRENA [Suspect]
     Dosage: 20 MCG/24HR, CONT
     Route: 015
     Dates: start: 20101001

REACTIONS (9)
  - MENTAL DISORDER [None]
  - FATIGUE [None]
  - HEADACHE [None]
  - INSOMNIA [None]
  - ABDOMINAL DISTENSION [None]
  - HYPOAESTHESIA [None]
  - IRRITABILITY [None]
  - DEPRESSION [None]
  - BREAST TENDERNESS [None]
